FAERS Safety Report 13370947 (Version 1)
Quarter: 2017Q1

REPORT INFORMATION
  Report Type: Spontaneous
  Country: US (occurrence: US)
  Receive Date: 20170324
  Receipt Date: 20170324
  Transmission Date: 20170429
  Serious: Yes (Disabling)
  Sender: FDA-Public Use
  Company Number: US-SAOL THERAPEUTICS-2017SAO00564

PATIENT
  Age: 53 Year
  Sex: Male

DRUGS (3)
  1. BACLOFEN. [Suspect]
     Active Substance: BACLOFEN
     Indication: PAIN
     Dosage: 62.72 ?G, \DAY
     Route: 037
  2. DILAUDID [Suspect]
     Active Substance: HYDROMORPHONE HYDROCHLORIDE
     Dosage: 0.3797 MG, \DAY
     Route: 037
  3. DILAUDID [Suspect]
     Active Substance: HYDROMORPHONE HYDROCHLORIDE
     Dosage: .4181 MG, \DAY
     Route: 037

REACTIONS (4)
  - Drug ineffective for unapproved indication [Unknown]
  - Sensitivity to weather change [Unknown]
  - Bedridden [Not Recovered/Not Resolved]
  - Burns second degree [Unknown]

NARRATIVE: CASE EVENT DATE: 201612
